FAERS Safety Report 5972153-5 (Version None)
Quarter: 2008Q4

REPORT INFORMATION
  Report Type: 
  Country: None (occurrence: None)
  Receive Date: 20081201
  Receipt Date: 20080805
  Transmission Date: 20090506
  Serious: No
  Sender: FDA-Public Use
  Company Number: US-TEVA-176161USA

PATIENT
  Age: 37 Year
  Sex: Male

DRUGS (7)
  1. SALBUTAMOL SULFATE INHALATION, 0.09 MG [Suspect]
     Dosage: 1 PUFF AT BEDTIME
     Route: 055
     Dates: start: 20080101
  2. METFORMIN HCL [Concomitant]
  3. LISINOPRIL [Concomitant]
  4. GLYBURIDE [Concomitant]
  5. ROSIGLITAZONE MALEATE [Concomitant]
  6. ATORVASTATIN CALCIUM [Concomitant]
  7. FAMOTIDINE [Concomitant]

REACTIONS (1)
  - CHEST PAIN [None]
